FAERS Safety Report 17038909 (Version 2)
Quarter: 2019Q4

REPORT INFORMATION
  Report Type: Report from Study
  Country: KR (occurrence: KR)
  Receive Date: 20191115
  Receipt Date: 20191202
  Transmission Date: 20200122
  Serious: Yes (Hospitalization)
  Sender: FDA-Public Use
  Company Number: KR-PFIZER INC-2019497234

PATIENT
  Age: 67 Year
  Sex: Male
  Weight: 69 kg

DRUGS (9)
  1. PACLITAXEL. [Suspect]
     Active Substance: PACLITAXEL
     Indication: NEOPLASM
     Dosage: 148 MG, UNK
     Dates: start: 20190807, end: 20191028
  2. ACETYLSALICYLIC ACID [Concomitant]
     Active Substance: ASPIRIN
     Indication: PRINZMETAL ANGINA
     Dosage: 1 DF, 1X/DAY
     Route: 048
     Dates: start: 20040510
  3. ZOLPIDEM [Concomitant]
     Active Substance: ZOLPIDEM TARTRATE
     Indication: INSOMNIA
     Dosage: 1 DF, 1X/DAY
     Route: 048
     Dates: start: 20190830
  4. AVELUMAB [Suspect]
     Active Substance: AVELUMAB
     Dosage: 690 MG, UNK
     Route: 042
     Dates: start: 20191118
  5. ULTRACET [Concomitant]
     Active Substance: ACETAMINOPHEN\TRAMADOL HYDROCHLORIDE
     Indication: PAIN
     Dosage: 1 DF, 1X/DAY
     Route: 048
     Dates: start: 20191021
  6. SODIUM BICARBONATE. [Concomitant]
     Active Substance: SODIUM BICARBONATE
     Indication: METABOLIC ACIDOSIS
     Dosage: 1 DF, (1 IN 0.3 DAYS)
     Route: 048
     Dates: start: 20190924
  7. AVELUMAB [Suspect]
     Active Substance: AVELUMAB
     Indication: NEOPLASM
     Dosage: 705 MG, UNK
     Route: 042
     Dates: start: 20190807, end: 20191028
  8. PACLITAXEL. [Suspect]
     Active Substance: PACLITAXEL
     Dosage: 118.95 MG, UNK
     Dates: start: 20191118
  9. ATORVASTATIN [Concomitant]
     Active Substance: ATORVASTATIN
     Indication: PRINZMETAL ANGINA
     Dosage: 1 DF, 1X/DAY
     Route: 048
     Dates: start: 20120517

REACTIONS (1)
  - Pneumonia [Recovered/Resolved]

NARRATIVE: CASE EVENT DATE: 20191028
